FAERS Safety Report 21504333 (Version 2)
Quarter: 2024Q2

REPORT INFORMATION
  Report Type: Spontaneous
  Country: DE (occurrence: DE)
  Receive Date: 20221025
  Receipt Date: 20240527
  Transmission Date: 20240716
  Serious: Yes (Hospitalization, Other)
  Sender: FDA-Public Use
  Company Number: DE-EMA-DD-20221014-7180171-125704

PATIENT
  Age: 28 Year
  Sex: Female
  Weight: 62.2 kg

DRUGS (14)
  1. DOXORUBICIN [Suspect]
     Active Substance: DOXORUBICIN
     Dosage: 35 MG/M2, DOSAGE FORM: SOLUTION FOR INJECTION
     Route: 042
  2. CYCLOPHOSPHAMIDE [Suspect]
     Active Substance: CYCLOPHOSPHAMIDE
     Dosage: 1250 MG/M2
     Route: 042
  3. ETOPOSIDE [Suspect]
     Active Substance: ETOPOSIDE
     Dosage: 200 DOSAGE FORM (200 MG/ML)
     Route: 042
  4. PROCARBAZINE [Suspect]
     Active Substance: PROCARBAZINE
     Dosage: UNK
     Route: 048
  5. VINCRISTINE [Suspect]
     Active Substance: VINCRISTINE
     Dosage: 1.4 DF, (1.4 MG/ML)
     Route: 042
  6. PREDNISONE [Suspect]
     Active Substance: PREDNISONE
     Dosage: UNK
     Route: 048
  7. BLEOMYCIN [Suspect]
     Active Substance: BLEOMYCIN SULFATE
     Dosage: 10 MG/M2
     Route: 042
  8. TINZAPARIN [Suspect]
     Active Substance: TINZAPARIN
     Indication: Product used for unknown indication
     Dosage: 0.5 ML, ONCE A DAY, (0.5 ML, 0-0-1-0, PRE-FILLED SYRINGES)
     Route: 058
  9. INNOHEP [Concomitant]
     Active Substance: TINZAPARIN SODIUM
     Dosage: 1 {DF}, ONE A DAY, 20000 ANTI-XA IU/ML,  20000|0.5 IU/ML, ONE INJECTION IN THE EVENING
     Route: 058
  10. CALCIUM CHLORIDE\SODIUM CHLORIDE\SODIUM PHOSPHATE, DIBASIC, ANHYDROUS\ [Concomitant]
     Active Substance: CALCIUM CHLORIDE\SODIUM CHLORIDE\SODIUM PHOSPHATE, DIBASIC, ANHYDROUS\SODIUM PHOSPHATE, MONOBASIC, A
     Dosage: 15 {DF}, 7.8|15 MG/ML, ONE PIPETTE AS NEEDED
     Route: 048
  11. ONDANSETRON [Concomitant]
     Active Substance: ONDANSETRON
     Dosage: 1 {DF}, EVERY 12 HOURS, 8 MG, ONE TABLET IN THE MORNING AND EVENING AS NEEDED
     Route: 048
  12. MCP-RATIOPHARM [Concomitant]
     Active Substance: METOCLOPRAMIDE HYDROCHLORIDE
     Dosage: 10 MG, AS NEEDED (AS NECESSARY)
     Route: 048
  13. METOCLOPRAMIDE HYDROCHLORIDE [Concomitant]
     Active Substance: METOCLOPRAMIDE HYDROCHLORIDE
     Dosage: UNK
     Route: 065
  14. SULFAMETHOXAZOLE\TRIMETHOPRIM [Concomitant]
     Active Substance: SULFAMETHOXAZOLE\TRIMETHOPRIM
     Dosage: 1 {DF}, QD, 800|160 MG, MON WED FRI ONE TABLET IN THE MORNING
     Route: 048

REACTIONS (5)
  - Restlessness [Unknown]
  - General physical health deterioration [Unknown]
  - Constipation [Unknown]
  - Vomiting [Unknown]
  - Thrombocytopenia [Unknown]
